FAERS Safety Report 18281685 (Version 1)
Quarter: 2020Q3

REPORT INFORMATION
  Report Type: Spontaneous
  Country: US (occurrence: US)
  Receive Date: 20200916
  Receipt Date: 20200916
  Transmission Date: 20201103
  Serious: Yes (Hospitalization)
  Sender: FDA-Public Use
  Company Number: None

PATIENT
  Sex: Female

DRUGS (2)
  1. EXEMESTANE 25 MG ZYDUS PHARMACEUTICALS (USA) [Suspect]
     Active Substance: EXEMESTANE
     Indication: BREAST CANCER FEMALE
     Route: 048
     Dates: start: 202001
  2. AFINITOR [Suspect]
     Active Substance: EVEROLIMUS
     Indication: BREAST CANCER FEMALE
     Route: 048
     Dates: start: 202001

REACTIONS (3)
  - Urinary tract infection [None]
  - Intestinal obstruction [None]
  - Pneumonia [None]
